FAERS Safety Report 10596101 (Version 8)
Quarter: 2015Q2

REPORT INFORMATION
  Report Type: Report from Study
  Country: FR (occurrence: FR)
  Receive Date: 20141120
  Receipt Date: 20150625
  Transmission Date: 20150821
  Serious: Yes (Hospitalization)
  Sender: FDA-Public Use
  Company Number: FR-BAYER-2014-155774

PATIENT
  Age: 6 Year
  Sex: Female
  Weight: 33 kg

DRUGS (17)
  1. REGORAFENIB [Suspect]
     Active Substance: REGORAFENIB
     Indication: CENTRAL NERVOUS SYSTEM NEOPLASM
     Dosage: 40 TO 80MG ALTERNANCE
     Route: 048
     Dates: start: 20141223
  2. DUPHALAC [Concomitant]
     Active Substance: LACTULOSE
     Indication: CONSTIPATION
     Dosage: 15 ML
     Route: 048
     Dates: start: 20140930
  3. DIPROSONE [Concomitant]
     Active Substance: BETAMETHASONE DIPROPIONATE
     Indication: RASH MACULO-PAPULAR
     Dosage: UNK UNK, QD
     Route: 061
     Dates: start: 20141006, end: 20141012
  4. LEVOTHYROX [Concomitant]
     Active Substance: LEVOTHYROXINE
     Indication: HYPOTHYROIDISM
     Dosage: 8 DROPS DAILY
     Route: 048
     Dates: start: 20141006
  5. KEPPRA [Concomitant]
     Active Substance: LEVETIRACETAM
     Indication: PROPHYLAXIS
     Dosage: 7 ML DAILY
     Route: 048
     Dates: start: 20140915
  6. DEXERYL [GLYCEROL,PARAFFIN, LIQUID,WHITE SOFT PARAFFIN] [Concomitant]
  7. CERAT DE GALIEN [Concomitant]
     Indication: RASH MACULO-PAPULAR
     Dosage: UNK UNK, QD
     Route: 061
     Dates: start: 20141006, end: 20141012
  8. LEVOTHYROX [Concomitant]
     Active Substance: LEVOTHYROXINE
     Indication: HYPOTHYROIDISM
     Dosage: 4 DROPS DAILY
     Route: 048
     Dates: start: 20141018
  9. POLARAMINE [Concomitant]
     Active Substance: DEXCHLORPHENIRAMINE MALEATE
     Indication: PROPHYLAXIS
     Dosage: 10 ML, TID
     Route: 048
     Dates: start: 20141004, end: 20141006
  10. DUPHALAC [Concomitant]
     Active Substance: LACTULOSE
     Indication: CONSTIPATION
     Dosage: 16 ML
     Route: 048
     Dates: start: 20140930
  11. AERIUS [Concomitant]
     Active Substance: DESLORATADINE
     Indication: RASH MACULO-PAPULAR
     Dosage: 5 ML DAILY
     Route: 048
     Dates: start: 20141006, end: 20141008
  12. POLARAMINE [Concomitant]
     Active Substance: DEXCHLORPHENIRAMINE MALEATE
     Indication: PROPHYLAXIS
     Dosage: 5 MG ONCE
     Route: 042
     Dates: start: 20141006, end: 20141006
  13. REGORAFENIB [Suspect]
     Active Substance: REGORAFENIB
     Indication: CENTRAL NERVOUS SYSTEM NEOPLASM
     Dosage: 40MG, 21/28 DAYS
     Route: 048
     Dates: start: 20141219
  14. MICROPAKINE [Concomitant]
     Active Substance: VALPROIC ACID
     Indication: PROPHYLAXIS
     Dosage: 600 MG DAILY
     Route: 048
     Dates: start: 20130301, end: 20130915
  15. UROKINASE [Concomitant]
     Active Substance: UROKINASE
     Indication: THROMBOLYSIS
     Dosage: 10000 U ONCE
     Route: 042
     Dates: start: 20140917, end: 20140917
  16. REGORAFENIB [Suspect]
     Active Substance: REGORAFENIB
     Indication: CENTRAL NERVOUS SYSTEM NEOPLASM
     Dosage: 80 MG CYCLE 1
     Dates: start: 20140919, end: 20141017
  17. REGORAFENIB [Suspect]
     Active Substance: REGORAFENIB
     Indication: PRIMITIVE NEUROECTODERMAL TUMOUR
     Dosage: 60 MG
     Route: 048
     Dates: start: 20141017, end: 20141106

REACTIONS (3)
  - Cerebral salt-wasting syndrome [Not Recovered/Not Resolved]
  - Wound dehiscence [Recovered/Resolved]
  - Haemolysis [Recovered/Resolved]

NARRATIVE: CASE EVENT DATE: 20141010
